FAERS Safety Report 20020218 (Version 1)
Quarter: 2021Q4

REPORT INFORMATION
  Report Type: Spontaneous
  Country: US (occurrence: US)
  Receive Date: 20211101
  Receipt Date: 20211101
  Transmission Date: 20220303
  Serious: Yes (Other)
  Sender: FDA-Public Use
  Company Number: US-PFIZER INC-202101401899

PATIENT
  Age: 57 Year
  Sex: Female
  Weight: 48.99 kg

DRUGS (1)
  1. CHANTIX [Suspect]
     Active Substance: VARENICLINE TARTRATE
     Indication: Smoking cessation therapy
     Dosage: 0.5 MG TABLET AND 1 MG TABLET AS DIRECTED
     Route: 048

REACTIONS (3)
  - Neoplasm malignant [Unknown]
  - Skin disorder [Unknown]
  - Recalled product administered [Unknown]

NARRATIVE: CASE EVENT DATE: 20191101
